FAERS Safety Report 9137115 (Version 2)
Quarter: 2013Q1

REPORT INFORMATION
  Report Type: Spontaneous
  Country: DE (occurrence: DE)
  Receive Date: 20130304
  Receipt Date: 20130313
  Transmission Date: 20140127
  Serious: Yes (Hospitalization, Other)
  Sender: FDA-Public Use
  Company Number: DE-EISAI INC-E2090-02531-SPO-DE

PATIENT
  Age: 30 Year
  Sex: Male
  Weight: 65 kg

DRUGS (3)
  1. ZONEGRAN [Suspect]
     Indication: GRAND MAL CONVULSION
     Dosage: 300 MG DAILY
     Route: 048
  2. LAMOTRIGINE [Interacting]
     Indication: GRAND MAL CONVULSION
     Dosage: 600 MG DAILY
     Route: 048
  3. DICLOFENAC [Interacting]
     Indication: NEPHROLITHIASIS
     Dosage: 150 MG DAILY
     Route: 048
     Dates: start: 20130228

REACTIONS (4)
  - Grand mal convulsion [Recovered/Resolved]
  - Nephrolithiasis [Recovered/Resolved]
  - Off label use [Unknown]
  - Drug interaction [Unknown]
